FAERS Safety Report 10523862 (Version 1)
Quarter: 2014Q4

REPORT INFORMATION
  Report Type: Spontaneous
  Country: US (occurrence: None)
  Receive Date: 20141015
  Receipt Date: 20141015
  Transmission Date: 20150528
  Serious: No
  Sender: FDA-Public Use
  Company Number: None

PATIENT
  Age: 67 Year
  Sex: Male
  Weight: 104.33 kg

DRUGS (5)
  1. CEPHALEXIN. [Suspect]
     Active Substance: CEPHALEXIN
     Indication: PROPHYLAXIS
     Route: 048
     Dates: start: 20140926, end: 20140927
  2. ATENOLOL. [Suspect]
     Active Substance: ATENOLOL
  3. MULTIVITAMIN [Concomitant]
     Active Substance: VITAMINS
  4. OMEGA 3 [Concomitant]
     Active Substance: OMEGA-3 FATTY ACIDS
  5. CEPHALEXIN. [Suspect]
     Active Substance: CEPHALEXIN
     Indication: KNEE ARTHROPLASTY
     Route: 048
     Dates: start: 20140926, end: 20140927

REACTIONS (2)
  - Rash pruritic [None]
  - Rash erythematous [None]
